FAERS Safety Report 4544802-X (Version None)
Quarter: 2005Q1

REPORT INFORMATION
  Report Type: 
  Country: None (occurrence: None)
  Receive Date: 20050105
  Receipt Date: 20041209
  Transmission Date: 20050727
  Serious: Yes (Life-Threatening, Hospitalization)
  Sender: FDA-Public Use
  Company Number: JP-ROCHE-388698

PATIENT
  Age: 51 Year
  Sex: Male
  Weight: 63 kg

DRUGS (5)
  1. PANALDINE [Suspect]
     Indication: CEREBRAL INFARCTION
     Route: 048
     Dates: start: 19980615, end: 20041123
  2. SALOBEL [Suspect]
     Indication: HYPERURICAEMIA
     Route: 048
     Dates: start: 19990615, end: 20041123
  3. TEGRETOL [Suspect]
     Indication: CEREBRAL INFARCTION
     Route: 048
     Dates: start: 20030615, end: 20041123
  4. ASPIRIN [Concomitant]
     Indication: CEREBRAL INFARCTION
     Route: 048
     Dates: start: 19980615
  5. ADALAT CC [Concomitant]
     Indication: HYPERTENSION
     Route: 048

REACTIONS (8)
  - BLOOD PRESSURE DECREASED [None]
  - DISSEMINATED INTRAVASCULAR COAGULATION [None]
  - HEPATIC FUNCTION ABNORMAL [None]
  - ISCHAEMIC HEPATITIS [None]
  - MALAISE [None]
  - PROTHROMBIN TIME RATIO INCREASED [None]
  - SICK SINUS SYNDROME [None]
  - THROMBOCYTOPENIA [None]
